FAERS Safety Report 4554529-6 (Version None)
Quarter: 2005Q1

REPORT INFORMATION
  Report Type: 
  Country: None (occurrence: None)
  Receive Date: 20050114
  Receipt Date: 20040830
  Transmission Date: 20050727
  Serious: Yes (Life-Threatening, Hospitalization)
  Sender: FDA-Public Use
  Company Number: GXKR2004IT00556

PATIENT
  Age: 57 Year
  Sex: Male
  Weight: 56 kg

DRUGS (2)
  1. ATENOLOL [Suspect]
     Dosage: 28 TABLETS AFA 100 MG, ORAL
     Route: 048
  2. VERAPAMIL [Suspect]
     Dosage: 20 TABLETS AFA 80 MG, ORAL
     Route: 048

REACTIONS (13)
  - ANURIA [None]
  - ATRIOVENTRICULAR BLOCK FIRST DEGREE [None]
  - CARDIOGENIC SHOCK [None]
  - COMA [None]
  - DRUG INTERACTION [None]
  - DRUG LEVEL ABOVE THERAPEUTIC [None]
  - HYPOVENTILATION [None]
  - INTENTIONAL MISUSE [None]
  - PERIPHERAL COLDNESS [None]
  - PULMONARY OEDEMA [None]
  - PULSE ABSENT [None]
  - SINUS BRADYCARDIA [None]
  - SUICIDE ATTEMPT [None]
